FAERS Safety Report 4608760-1 (Version None)
Quarter: 2005Q1

REPORT INFORMATION
  Report Type: 
  Country: None (occurrence: None)
  Receive Date: 20050309
  Receipt Date: 20050218
  Transmission Date: 20050727
  Serious: Yes (Hospitalization, Other)
  Sender: FDA-Public Use
  Company Number: FR_050205890

PATIENT
  Age: 66 Year
  Sex: Female
  Weight: 34.0198 kg

DRUGS (6)
  1. GEMZAR [Suspect]
     Indication: METASTASES TO CENTRAL NERVOUS SYSTEM
     Dosage: 2 G/1 OTHER
     Route: 050
     Dates: start: 20050124
  2. CISPLATIN [Concomitant]
  3. RADIATION THERAPY [Concomitant]
  4. COUMADIN [Concomitant]
  5. IMOVANE (ZOPICLONE) [Concomitant]
  6. SERETIDE [Concomitant]

REACTIONS (3)
  - NEUTROPENIA [None]
  - THROMBOCYTOPENIA [None]
  - URINARY TRACT INFECTION STAPHYLOCOCCAL [None]
